FAERS Safety Report 11519546 (Version 4)
Quarter: 2015Q4

REPORT INFORMATION
  Report Type: Report from Study
  Country: US (occurrence: US)
  Receive Date: 20150918
  Receipt Date: 20151009
  Transmission Date: 20160304
  Serious: Yes (Other)
  Sender: FDA-Public Use
  Company Number: US-AMGEN-USASP2015095595

PATIENT
  Age: 48 Year
  Sex: Female

DRUGS (2)
  1. ENBREL [Suspect]
     Active Substance: ETANERCEPT
     Indication: RHEUMATOID ARTHRITIS
     Dosage: 50 MG, QWK
     Route: 065
     Dates: start: 20150813
  2. PREDNISONE. [Suspect]
     Active Substance: PREDNISONE
     Indication: PRODUCT USED FOR UNKNOWN INDICATION
     Dosage: UNK
     Route: 065

REACTIONS (27)
  - Toothache [Unknown]
  - Injection site bruising [Unknown]
  - Anaphylactic reaction [Recovered/Resolved]
  - Swelling face [Recovered/Resolved]
  - Lymphocyte count increased [Not Recovered/Not Resolved]
  - Injection site discolouration [Unknown]
  - Injection site warmth [Unknown]
  - Papilloma viral infection [Recovered/Resolved]
  - Contusion [Unknown]
  - Influenza like illness [Unknown]
  - Mouth swelling [Recovered/Resolved]
  - Pyrexia [Unknown]
  - Epistaxis [Unknown]
  - Injection site reaction [Unknown]
  - Mood altered [Unknown]
  - Bedridden [Unknown]
  - Rheumatoid arthritis [Not Recovered/Not Resolved]
  - Malaise [Not Recovered/Not Resolved]
  - Lip swelling [Recovered/Resolved]
  - Nausea [Recovered/Resolved]
  - Fatigue [Unknown]
  - Injection site urticaria [Unknown]
  - Depression [Unknown]
  - Pharyngeal oedema [Recovered/Resolved]
  - Sinus disorder [Unknown]
  - Injection site pain [Unknown]
  - Injection site pruritus [Unknown]

NARRATIVE: CASE EVENT DATE: 2015
